FAERS Safety Report 5298901-8 (Version None)
Quarter: 2007Q2

REPORT INFORMATION
  Report Type: 
  Country: None (occurrence: None)
  Receive Date: 20070417
  Receipt Date: 20070406
  Transmission Date: 20071010
  Serious: Yes (Other)
  Sender: FDA-Public Use
  Company Number: US-AMGEN-US218415

PATIENT
  Sex: Female
  Weight: 47.7 kg

DRUGS (7)
  1. ARANESP [Suspect]
     Indication: MYELODYSPLASTIC SYNDROME
     Route: 058
     Dates: start: 20060810, end: 20070227
  2. LORATADINE [Concomitant]
  3. NITRGLYCERIN TRANSDERMAL SYSTEM [Concomitant]
     Route: 062
  4. WARFARIN SODIUM [Concomitant]
  5. ASPIRIN [Concomitant]
  6. HYDROCHLOROTHIAZIDE [Concomitant]
  7. PREDNISOLONE [Concomitant]
     Route: 047

REACTIONS (1)
  - HAEMOGLOBIN DECREASED [None]
